FAERS Safety Report 6441516-6 (Version None)
Quarter: 2009Q4

REPORT INFORMATION
  Report Type: 
  Country: None (occurrence: None)
  Receive Date: 20091116
  Receipt Date: 20091111
  Transmission Date: 20100525
  Serious: Yes (Other)
  Sender: FDA-Public Use
  Company Number: US-CELGENEUS-163-21880-09100735

PATIENT
  Sex: Female
  Weight: 79.4 kg

DRUGS (4)
  1. REVLIMID [Suspect]
     Route: 048
     Dates: start: 20090916, end: 20091002
  2. REVLIMID [Suspect]
     Dosage: UNKNOWN
     Route: 048
     Dates: start: 20091028
  3. FLAVOPIRIDOL [Suspect]
     Dosage: 30MG/M2 OVER 30 MIN, 30MG/M2 OVER 4 HRS
     Route: 051
     Dates: start: 20090916, end: 20091002
  4. FLAVOPIRIDOL [Suspect]
     Dosage: 30MG/M2 OVER 30 MIN, THEN 50MG/M2 OVER 4 HRS
     Dates: start: 20090819

REACTIONS (2)
  - BLOOD HUMAN CHORIONIC GONADOTROPIN POSITIVE [None]
  - HAEMOGLOBIN DECREASED [None]
